FAERS Safety Report 23786287 (Version 1)
Quarter: 2024Q2

REPORT INFORMATION
  Report Type: Spontaneous
  Country: PL (occurrence: PL)
  Receive Date: 20240426
  Receipt Date: 20240426
  Transmission Date: 20240715
  Serious: Yes (Other)
  Sender: FDA-Public Use
  Company Number: None

PATIENT
  Age: 65 Year
  Sex: Female
  Weight: 61 kg

DRUGS (3)
  1. ETANERCEPT [Suspect]
     Active Substance: ETANERCEPT
     Indication: Rheumatoid arthritis
     Dosage: 50 MG, QWK
     Route: 058
     Dates: start: 20111221
  2. METHYLPREDNISOLONE [Suspect]
     Active Substance: METHYLPREDNISOLONE
     Indication: Rheumatoid arthritis
     Dosage: 8 MG, QD
     Route: 048
     Dates: start: 20110715
  3. PROLIA [Suspect]
     Active Substance: DENOSUMAB
     Indication: Osteoporosis
     Dosage: 60 MG, Q6MO
     Route: 058
     Dates: start: 20140716, end: 20150518

REACTIONS (3)
  - Fracture [Unknown]
  - Osteonecrosis of jaw [Recovered/Resolved]
  - Osteonecrosis [Recovered/Resolved]

NARRATIVE: CASE EVENT DATE: 20150101
